FAERS Safety Report 9859040 (Version 2)
Quarter: 2014Q4

REPORT INFORMATION
  Report Type: Spontaneous
  Country: US (occurrence: None)
  Receive Date: 20140129
  Receipt Date: 20141028
  Transmission Date: 20150529
  Serious: Yes (Other)
  Sender: FDA-Public Use
  Company Number: 2014-US-000590

PATIENT
  Age: 65 Year
  Sex: Male

DRUGS (1)
  1. XYREM [Suspect]
     Active Substance: SODIUM OXYBATE
     Indication: APNOEA
     Route: 048
     Dates: start: 201201, end: 2012

REACTIONS (3)
  - Loss of consciousness [None]
  - Condition aggravated [None]
  - Emotional disorder [None]

NARRATIVE: CASE EVENT DATE: 201311
